FAERS Safety Report 13498725 (Version 1)
Quarter: 2017Q2

REPORT INFORMATION
  Report Type: Spontaneous
  Country: US (occurrence: US)
  Receive Date: 20170428
  Receipt Date: 20170428
  Transmission Date: 20170830
  Serious: No
  Sender: FDA-Public Use
  Company Number: None

PATIENT
  Sex: Female
  Weight: 76.5 kg

DRUGS (9)
  1. FORTEO [Suspect]
     Active Substance: TERIPARATIDE
     Indication: OSTEOPOROSIS
     Route: 058
  2. OYSTERCAL - D [Concomitant]
  3. VESICARE [Concomitant]
     Active Substance: SOLIFENACIN SUCCINATE
  4. GLIPIZIDE. [Concomitant]
     Active Substance: GLIPIZIDE
  5. NIFEDICAL XL [Concomitant]
     Active Substance: NIFEDIPINE
  6. METOPROLOL TARTRATE. [Concomitant]
     Active Substance: METOPROLOL TARTRATE
  7. HYDROCHLOROTHIAZIDE-TRIAMTERENE [Concomitant]
  8. POTASSIUM [Concomitant]
     Active Substance: POTASSIUM
  9. CLOPIDOGREL [Concomitant]
     Active Substance: CLOPIDOGREL BISULFATE

REACTIONS (1)
  - Constipation [None]
